FAERS Safety Report 7293001-X (Version None)
Quarter: 2011Q1

REPORT INFORMATION
  Report Type: 
  Country: None (occurrence: None)
  Receive Date: 20110203
  Receipt Date: 20110125
  Transmission Date: 20110831
  Serious: Yes (Life-Threatening, Hospitalization)
  Sender: FDA-Public Use
  Company Number: 8055300

PATIENT
  Sex: Female
  Weight: 85 kg

DRUGS (3)
  1. VALPROIC ACID [Concomitant]
  2. GABAPENTIN [Concomitant]
  3. KEPPRA [Suspect]
     Indication: EPILEPSY
     Dosage: (250 MG BID ORAL)
     Route: 048
     Dates: start: 20011010, end: 20011013

REACTIONS (6)
  - STEVENS-JOHNSON SYNDROME [None]
  - CHEST PAIN [None]
  - THROMBOCYTOPENIA [None]
  - CARDIAC FAILURE [None]
  - MULTI-ORGAN FAILURE [None]
  - TRANSAMINASES INCREASED [None]
